FAERS Safety Report 12704048 (Version 1)
Quarter: 2016Q3

REPORT INFORMATION
  Report Type: Spontaneous
  Country: GB (occurrence: GB)
  Receive Date: 20160831
  Receipt Date: 20160831
  Transmission Date: 20161109
  Serious: Yes (Hospitalization)
  Sender: FDA-Public Use
  Company Number: GB-IPCA LABORATORIES LIMITED-IPC201608-000703

PATIENT
  Age: 73 Year
  Sex: Female

DRUGS (9)
  1. LEVOTHYROXINE. [Concomitant]
     Active Substance: LEVOTHYROXINE
  2. SIMVASTATIN. [Concomitant]
     Active Substance: SIMVASTATIN
  3. PHENOXYMETHYLPENICILLIN [Suspect]
     Active Substance: PENICILLIN V
  4. ASPIRIN. [Concomitant]
     Active Substance: ASPIRIN
  5. ALLOPURINOL. [Suspect]
     Active Substance: ALLOPURINOL
  6. INDAPAMIDE. [Concomitant]
     Active Substance: INDAPAMIDE
  7. COAMOXICLAV [Suspect]
     Active Substance: AMOXICILLIN\CLAVULANIC ACID
  8. DOSULEPIN HYDROCHLORIDE [Concomitant]
     Active Substance: DOTHIEPIN HYDROCHLORIDE
  9. LOSARTAN. [Concomitant]
     Active Substance: LOSARTAN

REACTIONS (1)
  - Drug reaction with eosinophilia and systemic symptoms [Recovering/Resolving]
